FAERS Safety Report 23519636 (Version 1)
Quarter: 2024Q1

REPORT INFORMATION
  Report Type: Spontaneous
  Country: US (occurrence: US)
  Receive Date: 20240213
  Receipt Date: 20240213
  Transmission Date: 20240409
  Serious: Yes (Hospitalization)
  Sender: FDA-Public Use
  Company Number: US-BEH-2024168486

PATIENT
  Age: 15 Year
  Sex: Female

DRUGS (1)
  1. HIZENTRA [Suspect]
     Active Substance: HUMAN IMMUNOGLOBULIN G
     Indication: Hypogammaglobulinaemia
     Dosage: 6 GRAM (4 TIMES PER WEEK)
     Route: 058
     Dates: start: 202304

REACTIONS (2)
  - Systemic lupus erythematosus [Unknown]
  - Pain [Unknown]
